FAERS Safety Report 10471807 (Version 2)
Quarter: 2014Q4

REPORT INFORMATION
  Report Type: Spontaneous
  Country: DE (occurrence: DE)
  Receive Date: 20140924
  Receipt Date: 20141015
  Transmission Date: 20150528
  Serious: Yes (Life-Threatening, Other)
  Sender: FDA-Public Use
  Company Number: DE-ROCHE-1465182

PATIENT
  Age: 83 Year
  Sex: Female
  Weight: 63 kg

DRUGS (6)
  1. XELODA [Suspect]
     Active Substance: CAPECITABINE
     Dosage: 3RD CYCLE(2*2000MG)
     Route: 048
     Dates: start: 20140901, end: 20140912
  2. XELODA [Suspect]
     Active Substance: CAPECITABINE
     Indication: COLORECTAL CANCER
     Dosage: 1 ST CYCLE (2*2000MG)
     Route: 048
     Dates: start: 20140721, end: 20140803
  3. XELODA [Suspect]
     Active Substance: CAPECITABINE
     Dosage: 2ND CYCLE(2*2000MG)
     Route: 048
     Dates: start: 20140811, end: 20140824
  4. PAROXETINE [Concomitant]
     Active Substance: PAROXETINE\PAROXETINE HYDROCHLORIDE
     Route: 048
  5. CANDESARTAN [Concomitant]
     Active Substance: CANDESARTAN
     Route: 048
  6. BISOPROLOL [Concomitant]
     Active Substance: BISOPROLOL
     Route: 065

REACTIONS (4)
  - Ileal ulcer [Unknown]
  - Diarrhoea [Not Recovered/Not Resolved]
  - Dehydration [Unknown]
  - Pyrexia [Unknown]

NARRATIVE: CASE EVENT DATE: 20140911
